FAERS Safety Report 8298654-5 (Version None)
Quarter: 2012Q2

REPORT INFORMATION
  Report Type: 
  Country: None (occurrence: None)
  Receive Date: 20120419
  Receipt Date: 20120412
  Transmission Date: 20120825
  Serious: Yes (Other)
  Sender: FDA-Public Use
  Company Number: JP-JNJFOC-20120212631

PATIENT
  Age: 81 Year
  Sex: Female
  Weight: 45 kg

DRUGS (15)
  1. FLUVASTATIN SODIUM [Concomitant]
     Indication: HYPERLIPIDAEMIA
     Route: 048
     Dates: start: 20110805
  2. LOXONIN [Concomitant]
     Indication: PYREXIA
     Route: 048
     Dates: start: 20120208, end: 20120212
  3. ONON [Concomitant]
     Indication: NASOPHARYNGITIS
     Route: 048
     Dates: start: 20120213, end: 20120220
  4. RISEDRONATE SODIUM [Concomitant]
     Indication: OSTEOPOROSIS
     Route: 048
     Dates: start: 20110805, end: 20111017
  5. LOXONIN [Concomitant]
     Indication: PAIN
     Route: 048
     Dates: start: 20120208, end: 20120212
  6. DEQUALINIUM CHLORIDE [Concomitant]
     Indication: OROPHARYNGEAL PAIN
     Route: 048
     Dates: start: 20120208, end: 20120212
  7. GALANTAMINE HYDROBROMIDE [Suspect]
     Route: 048
     Dates: start: 20110901, end: 20120212
  8. GALANTAMINE HYDROBROMIDE [Suspect]
     Route: 048
     Dates: start: 20110805, end: 20110831
  9. MEDICON [Concomitant]
     Indication: NASOPHARYNGITIS
     Route: 048
     Dates: start: 20120213, end: 20120220
  10. GALANTAMINE HYDROBROMIDE [Suspect]
     Indication: DEMENTIA ALZHEIMER'S TYPE
     Route: 048
     Dates: start: 20120213, end: 20120220
  11. NON-PYRINE COLD PREPARATION [Concomitant]
     Indication: NASOPHARYNGITIS
     Route: 048
     Dates: start: 20120208, end: 20120212
  12. RECALBON [Concomitant]
     Indication: OSTEOPOROSIS
     Route: 048
     Dates: start: 20111025
  13. GALANTAMINE HYDROBROMIDE [Suspect]
     Route: 048
     Dates: start: 20120224
  14. VITAMEDIN [Concomitant]
     Indication: STOMATITIS
     Route: 048
     Dates: start: 20120213, end: 20120220
  15. LANSOPRAZOLE [Concomitant]
     Indication: GASTROOESOPHAGEAL REFLUX DISEASE
     Route: 048
     Dates: start: 20110805

REACTIONS (4)
  - ATRIAL FIBRILLATION [None]
  - WEIGHT INCREASED [None]
  - LOSS OF CONSCIOUSNESS [None]
  - VOMITING [None]
